FAERS Safety Report 12725555 (Version 2)
Quarter: 2016Q4

REPORT INFORMATION
  Report Type: Spontaneous
  Country: JP (occurrence: JP)
  Receive Date: 20160908
  Receipt Date: 20161228
  Transmission Date: 20170207
  Serious: Yes (Hospitalization)
  Sender: FDA-Public Use
  Company Number: JP-FRI-1000087394

PATIENT
  Age: 28 Year
  Sex: Male

DRUGS (8)
  1. LEVOMEPROMAZINE MALEATE [Concomitant]
     Active Substance: LEVOMEPROMAZINE MALEATE
     Dosage: UNK
     Dates: start: 20160513, end: 20160819
  2. TRAZODONE [Suspect]
     Active Substance: TRAZODONE HYDROCHLORIDE
     Indication: INSOMNIA
     Dosage: 50 MG, QD
     Route: 048
     Dates: start: 20160224, end: 20160714
  3. ASENAPINE MALEATE UNK [Suspect]
     Active Substance: ASENAPINE MALEATE
     Indication: ABULIA
     Dosage: 10 MG, BID
     Route: 060
     Dates: start: 20160613, end: 20160714
  4. NORITREN [Suspect]
     Active Substance: NORTRIPTYLINE HYDROCHLORIDE
     Indication: ABULIA
     Dosage: 50 MG, BID
     Route: 048
     Dates: start: 20160509, end: 20160714
  5. ASENAPINE MALEATE UNK [Suspect]
     Active Substance: ASENAPINE MALEATE
     Indication: SCHIZOPHRENIA
     Dosage: 5 MG, BID
     Route: 060
     Dates: start: 2016, end: 2016
  6. FLUNITRAZEPAM [Concomitant]
     Active Substance: FLUNITRAZEPAM
     Dosage: UNK
     Dates: start: 20150914, end: 20160819
  7. BROTIZOLAM [Concomitant]
     Active Substance: BROTIZOLAM
     Dosage: UNK
     Dates: start: 20150914, end: 20160819
  8. PALIPERIDONE. [Concomitant]
     Active Substance: PALIPERIDONE
     Dosage: 12 MG, UNK
     Dates: start: 20141208, end: 20160612

REACTIONS (2)
  - Delusion of grandeur [Unknown]
  - Mania [Unknown]

NARRATIVE: CASE EVENT DATE: 2016
